FAERS Safety Report 4797643-2 (Version None)
Quarter: 2005Q4

REPORT INFORMATION
  Report Type: 
  Country: None (occurrence: None)
  Receive Date: 20051013
  Receipt Date: 20051005
  Transmission Date: 20060501
  Serious: Yes (Hospitalization)
  Sender: FDA-Public Use
  Company Number: EG-MERCK-0510USA02412

PATIENT
  Age: 44 Year
  Sex: Male

DRUGS (5)
  1. ZETIA [Suspect]
     Indication: HYPERCHOLESTEROLAEMIA
     Route: 048
     Dates: start: 20050925, end: 20051001
  2. NIFEDIPINE [Concomitant]
     Route: 065
  3. DOXORUBICIN [Concomitant]
     Route: 065
  4. WARFARIN SODIUM [Concomitant]
     Route: 065
  5. [THERAPY UNSPECIFIED] [Concomitant]
     Route: 065

REACTIONS (4)
  - HEADACHE [None]
  - MUSCLE SPASMS [None]
  - MYALGIA [None]
  - SOMNOLENCE [None]
